FAERS Safety Report 20393119 (Version 2)
Quarter: 2022Q1

REPORT INFORMATION
  Report Type: Report from Study
  Country: CA (occurrence: CA)
  Receive Date: 20220128
  Receipt Date: 20220210
  Transmission Date: 20220423
  Serious: Yes (Hospitalization, Other)
  Sender: FDA-Public Use
  Company Number: CA-TAKEDA-CA202008803

PATIENT
  Age: 70 Year
  Sex: Female
  Weight: 50 kg

DRUGS (1)
  1. HUMAN IMMUNOGLOBULIN G [Suspect]
     Active Substance: HUMAN IMMUNOGLOBULIN G
     Indication: Primary immunodeficiency syndrome
     Dosage: 4 GRAM, 1/WEEK
     Route: 058
     Dates: start: 20200219

REACTIONS (4)
  - Intestinal prolapse [Recovering/Resolving]
  - Influenza [Unknown]
  - Therapy interrupted [Unknown]
  - Product preparation error [Unknown]

NARRATIVE: CASE EVENT DATE: 20210804
